FAERS Safety Report 5007517-X (Version None)
Quarter: 2006Q2

REPORT INFORMATION
  Report Type: 
  Country: None (occurrence: None)
  Receive Date: 20060405
  Receipt Date: 20050304
  Transmission Date: 20061013
  Serious: Yes (Other)
  Sender: FDA-Public Use
  Company Number: PHEH2005US02778

PATIENT
  Age: 59 Year
  Sex: Female

DRUGS (5)
  1. VIVELLE-DOT [Suspect]
     Indication: ANXIETY
     Dosage: 2 PATCHES EVERY 2 DAYS, TRANSDERMAL
     Route: 062
     Dates: start: 20040101
  2. VIVELLE-DOT [Suspect]
     Indication: DEPRESSION
     Dosage: 2 PATCHES EVERY 2 DAYS, TRANSDERMAL
     Route: 062
     Dates: start: 20040101
  3. VIVELLE-DOT [Suspect]
     Indication: HOT FLUSH
     Dosage: 2 PATCHES EVERY 2 DAYS, TRANSDERMAL
     Route: 062
     Dates: start: 20040101
  4. VIVELLE-DOT [Suspect]
     Indication: NERVOUSNESS
     Dosage: 2 PATCHES EVERY 2 DAYS, TRANSDERMAL
     Route: 062
     Dates: start: 20040101
  5. THYROID TAB [Concomitant]

REACTIONS (6)
  - ANXIETY [None]
  - DEPRESSION [None]
  - FEELING OF DESPAIR [None]
  - HOT FLUSH [None]
  - NERVOUSNESS [None]
  - NIGHT SWEATS [None]
